FAERS Safety Report 6200331-9 (Version None)
Quarter: 2009Q2

REPORT INFORMATION
  Report Type: 
  Country: None (occurrence: None)
  Receive Date: 20090522
  Receipt Date: 20090518
  Transmission Date: 20091009
  Serious: Yes (Hospitalization)
  Sender: FDA-Public Use
  Company Number: PHHO2008FI08659

PATIENT
  Sex: Female

DRUGS (2)
  1. STARLIX DJN+TAB [Suspect]
     Indication: GLUCOSE TOLERANCE IMPAIRED
     Dosage: DOUBLE-BLIND
     Route: 048
     Dates: start: 20031125
  2. VALSARTAN [Suspect]
     Indication: CARDIOVASCULAR DISORDER
     Dosage: DOUBLE-BLIND
     Route: 048
     Dates: start: 20031125

REACTIONS (4)
  - CONCOMITANT DISEASE PROGRESSION [None]
  - KNEE ARTHROPLASTY [None]
  - OSTEOARTHRITIS [None]
  - POSTOPERATIVE WOUND INFECTION [None]
